FAERS Safety Report 24738375 (Version 1)
Quarter: 2024Q4

REPORT INFORMATION
  Report Type: Spontaneous
  Country: US (occurrence: US)
  Receive Date: 20241216
  Receipt Date: 20241216
  Transmission Date: 20250115
  Serious: Yes (Other)
  Sender: PFIZER
  Company Number: US-PFIZER INC-202400322847

PATIENT
  Age: 75 Year
  Sex: Male
  Weight: 77.098 kg

DRUGS (1)
  1. TIKOSYN [Suspect]
     Active Substance: DOFETILIDE
     Indication: Heart rate
     Dosage: 1X/DAY
     Route: 048
     Dates: start: 2021

REACTIONS (3)
  - Thrombosis [Unknown]
  - Hypoacusis [Unknown]
  - Malaise [Unknown]
